FAERS Safety Report 7349706-5 (Version None)
Quarter: 2011Q1

REPORT INFORMATION
  Report Type: 
  Country: None (occurrence: None)
  Receive Date: 20110309
  Receipt Date: 20110309
  Transmission Date: 20110831
  Serious: Yes (Hospitalization)
  Sender: FDA-Public Use
  Company Number: None

PATIENT
  Age: 59 Year
  Sex: Male
  Weight: 90 kg

DRUGS (2)
  1. WARFARIN SODIUM [Suspect]
     Indication: CARDIAC FAILURE CONGESTIVE
     Dosage: MG PO , 500 MG BID PO
     Route: 048
     Dates: start: 20101123, end: 20110221
  2. WARFARIN SODIUM [Suspect]
     Indication: CARDIAC FAILURE CONGESTIVE
     Dosage: MG PO , 500 MG BID PO
     Route: 048
     Dates: start: 20110201, end: 20110221

REACTIONS (1)
  - GASTROINTESTINAL HAEMORRHAGE [None]
